FAERS Safety Report 8302343-8 (Version None)
Quarter: 2012Q1

REPORT INFORMATION
  Report Type: 
  Country: None (occurrence: None)
  Receive Date: 20120326
  Receipt Date: 20110512
  Transmission Date: 20120608
  Serious: Yes (Other)
  Sender: FDA-Public Use
  Company Number: PHHY2011US41472

PATIENT
  Age: 67 Year
  Sex: Female

DRUGS (1)
  1. VIVELLE-DOT [Suspect]
     Dosage: TRANSDERMAL
     Route: 062

REACTIONS (1)
  - CEREBROVASCULAR ACCIDENT [None]
